FAERS Safety Report 7743974-3 (Version None)
Quarter: 2011Q3

REPORT INFORMATION
  Report Type: 
  Country: None (occurrence: None)
  Receive Date: 20110912
  Receipt Date: 20110826
  Transmission Date: 20111222
  Serious: No
  Sender: FDA-Public Use
  Company Number: US-ROXANE LABORATORIES, INC.-2011-RO-01090RO

PATIENT
  Sex: Female
  Weight: 54 kg

DRUGS (3)
  1. FLUTICASONE PROPIONATE [Suspect]
     Route: 045
  2. FEXOFENADINE [Concomitant]
     Dosage: 180 MG
  3. LIPITOR [Concomitant]
     Dosage: 10 MG

REACTIONS (2)
  - NASAL DISORDER [None]
  - PRODUCT MEASURED POTENCY ISSUE [None]
